FAERS Safety Report 5294557-9 (Version None)
Quarter: 2007Q2

REPORT INFORMATION
  Report Type: 
  Country: None (occurrence: None)
  Receive Date: 20070409
  Receipt Date: 20070409
  Transmission Date: 20071010
  Serious: Yes (Hospitalization, Other)
  Sender: FDA-Public Use
  Company Number: None

PATIENT
  Age: 28 Year
  Sex: Female
  Weight: 63.5036 kg

DRUGS (3)
  1. YASMIN [Suspect]
     Indication: CONTRACEPTION
     Dosage: 1 PILL A DAY PO
     Route: 048
     Dates: start: 20051201, end: 20070301
  2. YASMIN [Concomitant]
  3. YAZ [Concomitant]

REACTIONS (7)
  - ASTIGMATISM [None]
  - CHEST PAIN [None]
  - DIZZINESS [None]
  - MIDDLE EAR EFFUSION [None]
  - PANIC ATTACK [None]
  - UNEVALUABLE EVENT [None]
  - VISION BLURRED [None]
